FAERS Safety Report 4796509-1 (Version None)
Quarter: 2005Q3

REPORT INFORMATION
  Report Type: 
  Country: None (occurrence: None)
  Receive Date: 20050916
  Receipt Date: 20050201
  Transmission Date: 20060218
  Serious: Yes (Hospitalization)
  Sender: FDA-Public Use
  Company Number: US-JNJFOC-20041005795

PATIENT
  Age: 31 Year
  Sex: Female
  Weight: 68.0396 kg

DRUGS (2)
  1. TOPAMAX [Suspect]
     Indication: EPILEPSY
     Dosage: 400 MG, 1 IN 1 DAY, ORAL
     Route: 048
     Dates: start: 20040701, end: 20040811
  2. LAMICTAL [Concomitant]

REACTIONS (6)
  - ADVERSE DRUG REACTION [None]
  - ANOREXIA [None]
  - BLISTER [None]
  - BLOOD PRESSURE DECREASED [None]
  - HEART RATE INCREASED [None]
  - RASH [None]
